FAERS Safety Report 12556384 (Version 1)
Quarter: 2016Q3

REPORT INFORMATION
  Report Type: Spontaneous
  Country: US (occurrence: None)
  Receive Date: 20160713
  Receipt Date: 20160713
  Transmission Date: 20161109
  Serious: Yes (Disabling)
  Sender: FDA-Public Use
  Company Number: None

PATIENT
  Age: 67 Year
  Sex: Male
  Weight: 68.04 kg

DRUGS (27)
  1. QUINOL [Concomitant]
  2. CHONDROITIN [Concomitant]
     Active Substance: CHONDROITIN
  3. GRAPESEED OIL [Concomitant]
  4. TRAVATAN [Concomitant]
     Active Substance: TRAVOPROST
  5. TURMERIC [Concomitant]
     Active Substance: TURMERIC
  6. PARSLEY. [Concomitant]
     Active Substance: PARSLEY
  7. VITAMIN C [Concomitant]
     Active Substance: ASCORBIC ACID
  8. MSM [Concomitant]
     Active Substance: DIMETHYL SULFONE
  9. ACTIVIA [Concomitant]
  10. AZILECT [Concomitant]
     Active Substance: RASAGILINE MESYLATE
  11. DOXAZOSEN [Concomitant]
  12. SINEMET [Suspect]
     Active Substance: CARBIDOPA\LEVODOPA
     Indication: PARKINSON^S DISEASE
     Dosage: 25 MGS - 100 MGS  1 PILL 4 TIMES DAILY BY MOUTH WITH WATER
     Route: 048
     Dates: start: 20100505
  13. EXCEDRIN [Concomitant]
     Active Substance: ACETAMINOPHEN\ASPIRIN\CAFFEINE
  14. CQ10 [Concomitant]
     Active Substance: UBIDECARENONE
  15. PUMPKINSEED OIL [Concomitant]
  16. KRILL OIL [Concomitant]
     Active Substance: DIETARY SUPPLEMENT
  17. ALPHA LIPOIC ACID [Concomitant]
     Active Substance: .ALPHA.-LIPOIC ACID
  18. CALCIUM CITRATE [Concomitant]
     Active Substance: CALCIUM CITRATE
  19. DORZOLAMIDE [Concomitant]
     Active Substance: DORZOLAMIDE
  20. L-THIANINE [Concomitant]
  21. MUCUNA PRURIENS [Concomitant]
  22. GARLIC. [Concomitant]
     Active Substance: GARLIC
  23. SAW PALMETTO [Concomitant]
     Active Substance: SAW PALMETTO
  24. RESTASIS [Concomitant]
     Active Substance: CYCLOSPORINE
  25. VITAMIN E [Concomitant]
     Active Substance: .ALPHA.-TOCOPHEROL
  26. VIT. D3 [Concomitant]
  27. GLUCOSIMMATE [Concomitant]

REACTIONS (2)
  - Hypoaesthesia [None]
  - Abasia [None]

NARRATIVE: CASE EVENT DATE: 20160404
